FAERS Safety Report 6315481-6 (Version None)
Quarter: 2009Q3

REPORT INFORMATION
  Report Type: 
  Country: None (occurrence: None)
  Receive Date: 20090819
  Receipt Date: 20090814
  Transmission Date: 20100115
  Serious: Yes (Death, Hospitalization, Other)
  Sender: FDA-Public Use
  Company Number: AU-CELGENEUS-008-20785-09050767

PATIENT
  Sex: Male
  Weight: 85 kg

DRUGS (10)
  1. THALIDOMIDE [Suspect]
     Indication: MULTIPLE MYELOMA
     Route: 048
     Dates: start: 20071206
  2. PREDNISOLONE [Concomitant]
     Route: 065
     Dates: start: 20070901
  3. PREDNISOLONE [Concomitant]
  4. RESPRIM FORTE [Concomitant]
     Route: 065
     Dates: start: 20070901
  5. ATENOLOL [Concomitant]
     Indication: HYPERTENSION
     Route: 065
  6. ATENOLOL [Concomitant]
     Indication: ATRIAL FIBRILLATION
  7. ESOMEPRAZOLE [Concomitant]
     Route: 065
     Dates: start: 20070101
  8. FENTANYL TRANSDERMAL SYSTEM [Concomitant]
     Indication: PAIN
     Route: 065
     Dates: start: 20080401
  9. ASPIRIN [Concomitant]
     Route: 065
     Dates: start: 20090101
  10. CLOPIDOGREL [Concomitant]
     Route: 065
     Dates: start: 20090101

REACTIONS (5)
  - BLADDER CANCER [None]
  - BRONCHITIS [None]
  - DISEASE PROGRESSION [None]
  - KLEBSIELLA SEPSIS [None]
  - LARYNGEAL CANCER [None]
